FAERS Safety Report 18074268 (Version 2)
Quarter: 2020Q3

REPORT INFORMATION
  Report Type: Spontaneous
  Country: US (occurrence: US)
  Receive Date: 20200727
  Receipt Date: 20200915
  Transmission Date: 20201103
  Serious: Yes (Other)
  Sender: FDA-Public Use
  Company Number: US-PFIZER INC-2020282595

PATIENT
  Age: 51 Year
  Sex: Female
  Weight: 90.72 kg

DRUGS (3)
  1. LYRICA [Suspect]
     Active Substance: PREGABALIN
     Indication: PAIN
     Dosage: 50 MG, 1X/DAY (50MG NIGHTLY)
  2. LYRICA [Suspect]
     Active Substance: PREGABALIN
     Indication: NEUROPATHY PERIPHERAL
     Dosage: 300 MG, 2X/DAY (INCREASED EVENTUALLY TO 300MG TWICE DAILY)
  3. LYRICA [Suspect]
     Active Substance: PREGABALIN
     Dosage: 75 MG, 2X/DAY
     Route: 048

REACTIONS (26)
  - Weight increased [Unknown]
  - Mental disorder [Unknown]
  - Cognitive disorder [Unknown]
  - Tooth disorder [Unknown]
  - Muscle spasms [Unknown]
  - Feeling cold [Unknown]
  - Seizure [Unknown]
  - Ageusia [Unknown]
  - Alopecia [Unknown]
  - Insomnia [Unknown]
  - Feeling abnormal [Unknown]
  - Mood swings [Unknown]
  - Dehydration [Unknown]
  - Hyperhidrosis [Unknown]
  - Depressed mood [Unknown]
  - Bone disorder [Unknown]
  - Deafness [Unknown]
  - Illness [Unknown]
  - Memory impairment [Unknown]
  - Abdominal pain upper [Unknown]
  - Drug dependence [Unknown]
  - Dysphagia [Unknown]
  - Tinnitus [Unknown]
  - Dysphemia [Unknown]
  - Condition aggravated [Unknown]
  - Pain [Unknown]

NARRATIVE: CASE EVENT DATE: 2019
